FAERS Safety Report 7513689-5 (Version None)
Quarter: 2011Q2

REPORT INFORMATION
  Report Type: 
  Country: None (occurrence: None)
  Receive Date: 20110531
  Receipt Date: 20110519
  Transmission Date: 20111010
  Serious: Yes (Other)
  Sender: FDA-Public Use
  Company Number: US-ASTRAZENECA-2011SE30770

PATIENT
  Age: 80 Year
  Sex: Female

DRUGS (5)
  1. SYMBICORT [Suspect]
     Indication: ASTHMA
     Dosage: 320 MCG DAILY
     Route: 055
     Dates: start: 20110401
  2. TOPROL-XL [Suspect]
     Route: 048
  3. BETA BLOCKER [Concomitant]
  4. LISINOPRIL [Suspect]
     Route: 048
  5. LEVOSTATIN [Concomitant]

REACTIONS (10)
  - CARDIAC DISORDER [None]
  - CARDIAC VALVE DISEASE [None]
  - MITRAL VALVE DISEASE [None]
  - HYPERTENSION [None]
  - CARDIAC MURMUR [None]
  - TRICUSPID VALVE DISEASE [None]
  - HYPOTONIA [None]
  - CATARACT [None]
  - FEMUR FRACTURE [None]
  - PULMONARY HYPERTENSION [None]
